FAERS Safety Report 21957669 (Version 1)
Quarter: 2023Q1

REPORT INFORMATION
  Report Type: Spontaneous
  Country: NL (occurrence: NL)
  Receive Date: 20230206
  Receipt Date: 20230206
  Transmission Date: 20230418
  Serious: Yes (Hospitalization, Other)
  Sender: FDA-Public Use
  Company Number: NL-ROCHE-3254097

PATIENT
  Age: 69 Year
  Sex: Male

DRUGS (2)
  1. MYCOPHENOLATE MOFETIL [Interacting]
     Active Substance: MYCOPHENOLATE MOFETIL
     Indication: Kidney transplant rejection
     Dosage: 750 MILLIGRAM, BID
     Route: 065
  2. ACYCLOVIR [Interacting]
     Active Substance: ACYCLOVIR
     Indication: Meningoencephalitis herpetic
     Dosage: 10 MILLIGRAM/KILOGRAM (AT LEAST 21 DAYS)
     Route: 065

REACTIONS (6)
  - Myoclonus [Recovered/Resolved]
  - Blood creatinine increased [Recovered/Resolved]
  - Confusional state [Not Recovered/Not Resolved]
  - Meningoencephalitis herpetic [Unknown]
  - Neurotoxicity [Unknown]
  - Drug interaction [Unknown]
